FAERS Safety Report 9966259 (Version 1)
Quarter: 2014Q1

REPORT INFORMATION
  Report Type: Report from Study
  Country: US (occurrence: US)
  Receive Date: 20140305
  Receipt Date: 20140305
  Transmission Date: 20141002
  Serious: No
  Sender: FDA-Public Use
  Company Number: US-ABBVIE-13P-163-1120722-00

PATIENT
  Age: 29 Year
  Sex: Female

DRUGS (10)
  1. HUMIRA 40MG/0.4ML [Suspect]
     Indication: RHEUMATOID ARTHRITIS
     Dosage: INITIAL DOSE
     Dates: start: 20130715
  2. METHOTREXATE [Concomitant]
     Indication: RHEUMATOID ARTHRITIS
  3. FOLIC ACID [Concomitant]
     Indication: VITAMIN SUPPLEMENTATION
  4. CYCLOBENZAPRINE [Concomitant]
     Indication: MUSCLE SPASMS
  5. TRAZODONE [Concomitant]
     Indication: INSOMNIA
  6. OMEPRAZOLE [Concomitant]
     Indication: GASTRIC DISORDER
  7. HYDROCODONE [Concomitant]
     Indication: PAIN
     Dosage: 5/500MG A DAY AS NEEDED
  8. CLARITIN [Concomitant]
     Indication: HYPERSENSITIVITY
  9. CYCLAFEM [Concomitant]
     Indication: CONTRACEPTION
  10. PREDNISONE [Concomitant]
     Indication: RHEUMATOID ARTHRITIS
     Dosage: FOR 3-5 DAYS
     Dates: start: 20130715

REACTIONS (5)
  - Device malfunction [Recovering/Resolving]
  - Injection site pain [Recovering/Resolving]
  - Injection site pain [Recovering/Resolving]
  - Incorrect dose administered [Recovering/Resolving]
  - Headache [Not Recovered/Not Resolved]
